FAERS Safety Report 13072832 (Version 2)
Quarter: 2018Q1

REPORT INFORMATION
  Report Type: Spontaneous
  Country: US (occurrence: US)
  Receive Date: 20161229
  Receipt Date: 20180115
  Transmission Date: 20180508
  Serious: Yes (Other)
  Sender: FDA-Public Use
  Company Number: US-SA-2016SA126650

PATIENT
  Age: 49 Year
  Sex: Female
  Weight: 86 kg

DRUGS (5)
  1. CARBOPLATIN. [Concomitant]
     Active Substance: CARBOPLATIN
  2. HERCEPTIN [Concomitant]
     Active Substance: TRASTUZUMAB
  3. WELLBUTRIN [Concomitant]
     Active Substance: BUPROPION HYDROCHLORIDE
  4. TAXOTERE [Suspect]
     Active Substance: DOCETAXEL
     Indication: BREAST CANCER FEMALE
     Route: 051
     Dates: start: 20100322, end: 20100322
  5. TAXOTERE [Suspect]
     Active Substance: DOCETAXEL
     Indication: BREAST CANCER FEMALE
     Route: 051
     Dates: start: 20100706, end: 20100706

REACTIONS (10)
  - Psychological trauma [Unknown]
  - Anxiety [Unknown]
  - Hair colour changes [Unknown]
  - Hair texture abnormal [Unknown]
  - Pain [Unknown]
  - Alopecia [Recovering/Resolving]
  - Injury [Unknown]
  - Impaired quality of life [Unknown]
  - Emotional distress [Unknown]
  - Impaired work ability [Unknown]

NARRATIVE: CASE EVENT DATE: 20110101
